FAERS Safety Report 17010369 (Version 3)
Quarter: 2019Q4

REPORT INFORMATION
  Report Type: Report from Study
  Country: PL (occurrence: PL)
  Receive Date: 20191108
  Receipt Date: 20191212
  Transmission Date: 20200122
  Serious: Yes (Hospitalization)
  Sender: FDA-Public Use
  Company Number: PL-ROCHE-2454509

PATIENT
  Age: 56 Year
  Sex: Female

DRUGS (11)
  1. HYDROCORTISONE. [Concomitant]
     Active Substance: HYDROCORTISONE
     Indication: PROPHYLAXIS
     Route: 065
     Dates: start: 20130722
  2. METAMIZOLE [Concomitant]
     Active Substance: METAMIZOLE
     Indication: PROPHYLAXIS
     Route: 065
     Dates: start: 20191012, end: 20191012
  3. PARACETAMOL [Concomitant]
     Active Substance: ACETAMINOPHEN
     Indication: PROPHYLAXIS
     Route: 065
     Dates: start: 20130722
  4. CINIE [Concomitant]
     Indication: HEADACHE
     Route: 065
     Dates: start: 2011
  5. HEPATIL [Concomitant]
     Indication: PROPHYLAXIS
     Route: 065
     Dates: start: 20151027
  6. KALIPOZ-PROLONGATUM [Concomitant]
     Active Substance: POTASSIUM CHLORIDE
     Indication: PROPHYLAXIS
     Route: 065
     Dates: start: 20131216
  7. ONDANSETRON [Concomitant]
     Active Substance: ONDANSETRON
     Indication: PROPHYLAXIS
     Route: 065
     Dates: start: 20130722
  8. RANITIDINE. [Concomitant]
     Active Substance: RANITIDINE
     Indication: PROPHYLAXIS
     Route: 065
     Dates: start: 20130722, end: 20190916
  9. TRASTUZUMAB EMTANSINE [Suspect]
     Active Substance: ADO-TRASTUZUMAB EMTANSINE
     Indication: BREAST CANCER
     Dosage: DATE OF MOST RECENT DOSE OF T-DM1 PRIOR TO AE ONSET IS 07/OCT/2019.
     Route: 042
     Dates: start: 20161206
  10. BONVIVA [Concomitant]
     Active Substance: IBANDRONATE SODIUM
     Indication: OSTEOPOROSIS
     Route: 065
     Dates: start: 20130805
  11. KALIUM [POTASSIUM] [Concomitant]
     Route: 065
     Dates: start: 20191106

REACTIONS (1)
  - Vertigo [Recovered/Resolved]

NARRATIVE: CASE EVENT DATE: 20191012
